FAERS Safety Report 5425939-X (Version None)
Quarter: 2007Q3

REPORT INFORMATION
  Report Type: 
  Country: None (occurrence: None)
  Receive Date: 20070827
  Receipt Date: 20070713
  Transmission Date: 20080115
  Serious: Yes (Hospitalization)
  Sender: FDA-Public Use
  Company Number: NO-ELI_LILLY_AND_COMPANY-NO200707003229

PATIENT
  Age: 20 Year
  Sex: Male

DRUGS (9)
  1. ZYPREXA [Suspect]
     Indication: PSYCHOTIC DISORDER
     Dosage: 30 MG, DAILY (1/D)
     Route: 048
     Dates: start: 20070620, end: 20070628
  2. ZYPREXA [Suspect]
     Dosage: 10 MG, DAILY (1/D)
     Route: 030
     Dates: start: 20070625, end: 20070626
  3. CLONAZEPAM [Concomitant]
     Indication: ANXIETY
     Dosage: 1 MG, 4/D
     Route: 048
     Dates: start: 20070621, end: 20070629
  4. LEVOMEPROMAZINE [Concomitant]
     Dosage: 25-50 MG 4/D WHEN NEEDED
     Route: 048
     Dates: start: 20070620
  5. ZUCLOPENTHIXOL [Concomitant]
     Indication: PSYCHOTIC DISORDER
     Dosage: 50 MG, DAILY (1/D)
     Route: 040
     Dates: start: 20070621, end: 20070621
  6. ZUCLOPENTHIXOL [Concomitant]
     Dosage: 25 MG, DAILY (1/D)
     Route: 040
     Dates: start: 20070625, end: 20070625
  7. ZUCLOPENTHIXOL [Concomitant]
     Dosage: 50 MG, DAILY (1/D)
     Route: 040
     Dates: start: 20070627, end: 20070627
  8. DIAZEPAM [Concomitant]
     Indication: ANXIETY
     Dosage: 20 MG, AS NEEDED
     Route: 030
     Dates: start: 20070624
  9. ZOPICLONE [Concomitant]
     Indication: INSOMNIA
     Dosage: 7.5 MG 2/D, AS NEEDED
     Dates: start: 20070620

REACTIONS (1)
  - PULMONARY EMBOLISM [None]
